FAERS Safety Report 8519618-X (Version None)
Quarter: 2012Q3

REPORT INFORMATION
  Report Type: 
  Country: None (occurrence: None)
  Receive Date: 20120718
  Receipt Date: 20120716
  Transmission Date: 20120928
  Serious: Yes (Other)
  Sender: FDA-Public Use
  Company Number: DE-AMGEN-DEUSP2012007595

PATIENT
  Age: 72 Year
  Sex: Female
  Weight: 71 kg

DRUGS (2)
  1. VITAMIN D [Concomitant]
  2. PROLIA [Suspect]
     Indication: OSTEOPOROSIS POSTMENOPAUSAL
     Dosage: 60 MG, UNK
     Route: 058
     Dates: start: 20110701

REACTIONS (6)
  - GINGIVITIS [None]
  - BONE DISORDER [None]
  - EXPOSED BONE IN JAW [None]
  - GINGIVAL RECESSION [None]
  - GINGIVAL ATROPHY [None]
  - OSTEONECROSIS OF JAW [None]
